FAERS Safety Report 14364879 (Version 1)
Quarter: 2018Q1

REPORT INFORMATION
  Report Type: Spontaneous
  Country: US (occurrence: US)
  Receive Date: 20180108
  Receipt Date: 20180108
  Transmission Date: 20180509
  Serious: No
  Sender: FDA-Public Use
  Company Number: US-MIKART, INC.-2039626

PATIENT
  Age: 90 Year
  Sex: Female
  Weight: 53.41 kg

DRUGS (7)
  1. MICARDIS HCT [Concomitant]
     Active Substance: HYDROCHLOROTHIAZIDE\TELMISARTAN
     Route: 048
  2. ZOCOR [Concomitant]
     Active Substance: SIMVASTATIN
     Route: 048
  3. CALCIUM 500 MG/VITAMIN-D [Concomitant]
     Route: 048
  4. GABAPENTIN. [Concomitant]
     Active Substance: GABAPENTIN
     Route: 048
  5. NORVASC [Concomitant]
     Active Substance: AMLODIPINE BESYLATE
     Route: 048
  6. CHLORZOXAZONE. [Suspect]
     Active Substance: CHLORZOXAZONE
     Indication: NERVE COMPRESSION
     Route: 048
     Dates: start: 20171208, end: 20171212
  7. ASPIRIN. [Concomitant]
     Active Substance: ASPIRIN
     Route: 048

REACTIONS (4)
  - Dyskinesia [Recovered/Resolved]
  - Dyskinesia [Recovered/Resolved]
  - Dyskinesia [Recovered/Resolved]
  - Middle insomnia [Recovered/Resolved]

NARRATIVE: CASE EVENT DATE: 20171209
